FAERS Safety Report 19642400 (Version 5)
Quarter: 2022Q2

REPORT INFORMATION
  Report Type: Report from Study
  Country: US (occurrence: US)
  Receive Date: 20210731
  Receipt Date: 20220622
  Transmission Date: 20220720
  Serious: No
  Sender: FDA-Public Use
  Company Number: NVSC2021US171951

PATIENT
  Sex: Male

DRUGS (1)
  1. ENTRESTO [Suspect]
     Active Substance: SACUBITRIL\VALSARTAN
     Indication: Product used for unknown indication
     Dosage: UNK UNK, BID
     Route: 048

REACTIONS (7)
  - Visual impairment [Not Recovered/Not Resolved]
  - Palpitations [Unknown]
  - Diaphragmatic spasm [Unknown]
  - Bowel movement irregularity [Unknown]
  - Hypotension [Unknown]
  - Dizziness [Unknown]
  - Asthenia [Unknown]
